FAERS Safety Report 8342336-8 (Version None)
Quarter: 2012Q2

REPORT INFORMATION
  Report Type: 
  Country: None (occurrence: None)
  Receive Date: 20120508
  Receipt Date: 20120430
  Transmission Date: 20120825
  Serious: Yes (Hospitalization, Other)
  Sender: FDA-Public Use
  Company Number: US-AMGEN-USASP2012027362

PATIENT
  Sex: Female

DRUGS (1)
  1. ENBREL [Suspect]
     Indication: RHEUMATOID ARTHRITIS
     Dosage: UNK
     Dates: start: 20000101, end: 20090101

REACTIONS (14)
  - MENTAL DISORDER [None]
  - RHEUMATOID ARTHRITIS [None]
  - GAIT DISTURBANCE [None]
  - ALOPECIA [None]
  - ORAL INFECTION [None]
  - LIMB OPERATION [None]
  - NAUSEA [None]
  - CEREBROVASCULAR ACCIDENT [None]
  - GINGIVAL DISORDER [None]
  - HAEMATEMESIS [None]
  - HAEMORRHAGE [None]
  - HEPATIC CIRRHOSIS [None]
  - SURGERY [None]
  - RECTAL HAEMORRHAGE [None]
